FAERS Safety Report 4760716-4 (Version None)
Quarter: 2005Q3

REPORT INFORMATION
  Report Type: 
  Country: None (occurrence: None)
  Receive Date: 20050902
  Receipt Date: 20050603
  Transmission Date: 20060218
  Serious: Yes (Other)
  Sender: FDA-Public Use
  Company Number: 200511659JP

PATIENT
  Age: 60 Year
  Sex: Male

DRUGS (6)
  1. TAXOTERE [Suspect]
     Indication: HYPOPHARYNGEAL CANCER
     Dosage: DOSE: 40 MG/WEEK
     Route: 041
  2. TAXOTERE [Suspect]
     Indication: OESOPHAGEAL CARCINOMA
     Dosage: DOSE: 40 MG/WEEK
     Route: 041
  3. TS 1                                    /JPN/ [Suspect]
     Indication: HYPOPHARYNGEAL CANCER
  4. TS 1                                    /JPN/ [Suspect]
     Indication: OESOPHAGEAL CARCINOMA
  5. RANDA [Concomitant]
     Indication: HYPOPHARYNGEAL CANCER
  6. RANDA [Concomitant]
     Indication: OESOPHAGEAL CARCINOMA

REACTIONS (2)
  - ECZEMA [None]
  - HALLUCINATION [None]
